FAERS Safety Report 13743111 (Version 1)
Quarter: 2017Q3

REPORT INFORMATION
  Report Type: Report from Study
  Country: US (occurrence: US)
  Receive Date: 20170711
  Receipt Date: 20170711
  Transmission Date: 20171127
  Serious: Yes (Hospitalization)
  Sender: FDA-Public Use
  Company Number: US-TESARO, INC.-US-2017TSO00730

PATIENT
  Age: 71 Year
  Sex: Male
  Weight: 80.7 kg

DRUGS (2)
  1. NIRAPARIB [Suspect]
     Active Substance: NIRAPARIB
     Dosage: 200 MG, IN 1 DAY
     Route: 048
     Dates: start: 20170620
  2. NIRAPARIB [Suspect]
     Active Substance: NIRAPARIB
     Indication: PROSTATE CANCER METASTATIC
     Dosage: 300 MG, QD
     Route: 048
     Dates: start: 20170524

REACTIONS (5)
  - Hyponatraemia [Recovering/Resolving]
  - Vomiting [Not Recovered/Not Resolved]
  - Hypotension [Recovering/Resolving]
  - Nausea [Not Recovered/Not Resolved]
  - Hypovolaemia [Recovering/Resolving]

NARRATIVE: CASE EVENT DATE: 20170601
